FAERS Safety Report 19826674 (Version 1)
Quarter: 2021Q3

REPORT INFORMATION
  Report Type: Spontaneous
  Country: US (occurrence: US)
  Receive Date: 20210913
  Receipt Date: 20210913
  Transmission Date: 20211014
  Serious: Yes (Other)
  Sender: FDA-Public Use
  Company Number: US-TOLMAR, INC.-21US030214

PATIENT
  Age: 22 Year
  Sex: Female

DRUGS (3)
  1. TRIFLURIDINE. [Suspect]
     Active Substance: TRIFLURIDINE
     Indication: KERATITIS FUNGAL
     Dosage: TOPICAL
  2. ACYCLOVIR. [Suspect]
     Active Substance: ACYCLOVIR
     Indication: KERATITIS FUNGAL
     Dosage: UNK
     Route: 048
  3. MOXIFLOXACIN. [Suspect]
     Active Substance: MOXIFLOXACIN
     Indication: KERATITIS FUNGAL
     Dosage: UNK

REACTIONS (1)
  - Corneal infiltrates [Recovered/Resolved with Sequelae]
